FAERS Safety Report 21650545 (Version 9)
Quarter: 2023Q2

REPORT INFORMATION
  Report Type: Spontaneous
  Country: US (occurrence: US)
  Receive Date: 20221128
  Receipt Date: 20230406
  Transmission Date: 20230721
  Serious: Yes (Other)
  Sender: FDA-Public Use
  Company Number: US-PFIZER INC-PV202200110259

PATIENT
  Age: 68 Year
  Sex: Female

DRUGS (1)
  1. IBRANCE [Suspect]
     Active Substance: PALBOCICLIB
     Dosage: 125 MG
     Dates: start: 20221122

REACTIONS (13)
  - Diverticulitis [Unknown]
  - Product dose omission issue [Unknown]
  - Nausea [Unknown]
  - Diarrhoea [Unknown]
  - Disease recurrence [Unknown]
  - Rash pruritic [Not Recovered/Not Resolved]
  - Nasal congestion [Unknown]
  - Impaired healing [Unknown]
  - Abdominal pain upper [Unknown]
  - Insomnia [Unknown]
  - Abdominal discomfort [Recovering/Resolving]
  - Constipation [Unknown]
  - Arthralgia [Unknown]

NARRATIVE: CASE EVENT DATE: 20220101
